FAERS Safety Report 6154215-5 (Version None)
Quarter: 2009Q2

REPORT INFORMATION
  Report Type: 
  Country: None (occurrence: None)
  Receive Date: 20090414
  Receipt Date: 20090406
  Transmission Date: 20091009
  Serious: Yes (Hospitalization)
  Sender: FDA-Public Use
  Company Number: US-ASTRAZENECA-2009UW08651

PATIENT
  Age: 60 Year
  Sex: Male
  Weight: 86.2 kg

DRUGS (8)
  1. TOPROL-XL [Suspect]
     Route: 048
  2. TOPROL-XL [Suspect]
     Route: 048
  3. PLAVIX [Concomitant]
  4. ASPIRIN [Concomitant]
  5. NASACORT [Concomitant]
  6. PREVACID [Concomitant]
  7. LIPITOR [Concomitant]
  8. BENICAR HCT [Concomitant]

REACTIONS (5)
  - CARDIAC PACEMAKER MALFUNCTION [None]
  - HEADACHE [None]
  - PALPITATIONS [None]
  - PARAESTHESIA [None]
  - PERIPHERAL COLDNESS [None]
